FAERS Safety Report 25229937 (Version 1)
Quarter: 2025Q2

REPORT INFORMATION
  Report Type: Spontaneous
  Country: US (occurrence: US)
  Receive Date: 20250423
  Receipt Date: 20250423
  Transmission Date: 20250716
  Serious: No
  Sender: BLUEPRINT MEDICINES
  Company Number: US-Blueprint Medicines Corporation-2025-AER-00795

PATIENT
  Age: 35 Year
  Sex: Female

DRUGS (1)
  1. AYVAKIT [Suspect]
     Active Substance: AVAPRITINIB
     Indication: Mastocytoma
     Route: 065
     Dates: start: 20211214

REACTIONS (5)
  - Off label use [Unknown]
  - Emotional poverty [Unknown]
  - Product dose omission in error [Unknown]
  - Therapeutic product effect decreased [Unknown]
  - Drug interaction [Unknown]

NARRATIVE: CASE EVENT DATE: 20211214
